FAERS Safety Report 5507046-0 (Version None)
Quarter: 2007Q4

REPORT INFORMATION
  Report Type: 
  Country: None (occurrence: None)
  Receive Date: 20071102
  Receipt Date: 20071022
  Transmission Date: 20080405
  Serious: Yes (Death)
  Sender: FDA-Public Use
  Company Number: 2007333641

PATIENT
  Age: 15 Month
  Sex: Female

DRUGS (5)
  1. ACETYLSALICYLIC ACID SRT [Suspect]
     Dates: end: 19851006
  2. ACETAMINOPHEN [Suspect]
     Indication: PYREXIA
     Dates: start: 19851005, end: 19851006
  3. NOVAHISTINE ELIXIR (CHLOROFORM, CHLORPHENAMINE MALEATE, MENTHOL, PHENY [Suspect]
     Indication: RHINORRHOEA
     Dosage: 1 TSP TWICE DAILY, ORAL
     Route: 048
     Dates: start: 19851004
  4. GENTAMICIN SULFATE [Suspect]
     Dosage: INTRAMUSCULAR
     Route: 030
     Dates: start: 19851005
  5. GENTAMICIN SULFATE [Suspect]
     Dosage: INTRAVENOUS
     Route: 042
     Dates: start: 19851006

REACTIONS (7)
  - CROUP INFECTIOUS [None]
  - NO THERAPEUTIC RESPONSE [None]
  - PIGMENTATION DISORDER [None]
  - PYREXIA [None]
  - RASH MACULAR [None]
  - RESPIRATORY RATE INCREASED [None]
  - REYE'S SYNDROME [None]
